FAERS Safety Report 7428894-6 (Version None)
Quarter: 2011Q2

REPORT INFORMATION
  Report Type: 
  Country: None (occurrence: None)
  Receive Date: 20110412
  Receipt Date: 20110328
  Transmission Date: 20111010
  Serious: Yes (Death, Other)
  Sender: FDA-Public Use
  Company Number: 011636

PATIENT
  Age: 43 Year

DRUGS (4)
  1. BUSULFEX [Suspect]
     Dosage: INTRAVENOUS
     Route: 042
  2. CYCLOSPORINE [Concomitant]
  3. METHOTREXATE [Concomitant]
  4. CYCLOPHOSPHAMIDE [Concomitant]

REACTIONS (6)
  - HYPOGAMMAGLOBULINAEMIA [None]
  - ACUTE RESPIRATORY DISTRESS SYNDROME [None]
  - ACUTE GRAFT VERSUS HOST DISEASE [None]
  - LUNG INFILTRATION [None]
  - CYTOMEGALOVIRUS INFECTION [None]
  - H1N1 INFLUENZA [None]
